FAERS Safety Report 20050298 (Version 5)
Quarter: 2022Q1

REPORT INFORMATION
  Report Type: Spontaneous
  Country: CA (occurrence: CA)
  Receive Date: 20211109
  Receipt Date: 20220124
  Transmission Date: 20220424
  Serious: Yes (Other)
  Sender: FDA-Public Use
  Company Number: CA-PFIZER INC-202101235370

PATIENT
  Age: 62 Year
  Sex: Female

DRUGS (8)
  1. XELJANZ XR [Suspect]
     Active Substance: TOFACITINIB CITRATE
     Indication: Rheumatoid arthritis
     Dosage: 11 MG, 1X/DAY
     Route: 048
     Dates: start: 20210928, end: 20211104
  2. XELJANZ XR [Suspect]
     Active Substance: TOFACITINIB CITRATE
     Dosage: 11 MG 1X/DAY
     Route: 048
     Dates: start: 20211110
  3. XELJANZ XR [Suspect]
     Active Substance: TOFACITINIB CITRATE
     Dosage: 11 MG 1X/DAY
     Route: 048
     Dates: start: 2021, end: 20220110
  4. CORTISONE [Concomitant]
     Active Substance: CORTISONE
     Dosage: UNK
  5. CORTISONE [Concomitant]
     Active Substance: CORTISONE
     Dosage: UNK  FOR 6 WEEK
  6. CORTISONE [Concomitant]
     Active Substance: CORTISONE
     Dosage: 20 MG
     Dates: start: 20220110
  7. HYDROXYCHLOROQUINE [Concomitant]
     Active Substance: HYDROXYCHLOROQUINE
     Dosage: UNK
  8. METHOTREXATE [Concomitant]
     Active Substance: METHOTREXATE
     Dosage: 1 DF
     Route: 065
     Dates: start: 20190801

REACTIONS (13)
  - Back pain [Not Recovered/Not Resolved]
  - Neck pain [Not Recovered/Not Resolved]
  - Headache [Recovering/Resolving]
  - General physical health deterioration [Not Recovered/Not Resolved]
  - Drug ineffective [Unknown]
  - Constipation [Recovered/Resolved]
  - Chromaturia [Recovered/Resolved]
  - Phlebitis [Not Recovered/Not Resolved]
  - Inflammatory marker increased [Unknown]
  - Myalgia [Not Recovered/Not Resolved]
  - Musculoskeletal stiffness [Not Recovered/Not Resolved]
  - Urinary hesitation [Recovered/Resolved]
  - Urinary tract infection [Unknown]

NARRATIVE: CASE EVENT DATE: 20210101
